FAERS Safety Report 17474819 (Version 1)
Quarter: 2020Q1

REPORT INFORMATION
  Report Type: Report from Study
  Country: DZ (occurrence: DZ)
  Receive Date: 20200228
  Receipt Date: 20200228
  Transmission Date: 20200409
  Serious: Yes (Other)
  Sender: FDA-Public Use
  Company Number: DZ-AMGEN-DZANI2020032152

PATIENT

DRUGS (3)
  1. MVASI [Suspect]
     Active Substance: BEVACIZUMAB-AWWB
     Indication: COLORECTAL CANCER METASTATIC
     Dosage: UNK
     Route: 065
  2. FOLFOX 6 [Suspect]
     Active Substance: FLUOROURACIL\LEUCOVORIN CALCIUM\OXALIPLATIN
     Indication: COLORECTAL CANCER METASTATIC
     Dosage: UNK
     Route: 065
  3. PANITUMUMAB [Suspect]
     Active Substance: PANITUMUMAB
     Indication: COLORECTAL CANCER METASTATIC
     Dosage: UNK
     Route: 065

REACTIONS (6)
  - Rash [Unknown]
  - Blood pressure increased [Unknown]
  - Neuropathy peripheral [Unknown]
  - Intestinal obstruction [Unknown]
  - Diarrhoea [Unknown]
  - Fatigue [Unknown]
